FAERS Safety Report 9835014 (Version 2)
Quarter: 2014Q1

REPORT INFORMATION
  Report Type: Spontaneous
  Country: US (occurrence: US)
  Receive Date: 20140122
  Receipt Date: 20140211
  Transmission Date: 20141002
  Serious: Yes (Other)
  Sender: FDA-Public Use
  Company Number: US-PFIZER INC-2014020379

PATIENT
  Age: 33 Year
  Sex: Female
  Weight: 65.7 kg

DRUGS (2)
  1. CHANTIX [Suspect]
     Indication: SMOKING CESSATION THERAPY
     Dosage: UNK, 1X/DAY
     Route: 048
     Dates: start: 2012
  2. CHANTIX [Suspect]
     Dosage: UNK, 2X/DAY
     Dates: start: 2012, end: 2012

REACTIONS (4)
  - Brain neoplasm [Unknown]
  - Intracranial pressure increased [Unknown]
  - Intraocular pressure increased [Unknown]
  - Headache [Unknown]
